FAERS Safety Report 17329248 (Version 1)
Quarter: 2020Q1

REPORT INFORMATION
  Report Type: Spontaneous
  Country: US (occurrence: US)
  Receive Date: 20200127
  Receipt Date: 20200127
  Transmission Date: 20200409
  Serious: Yes (Disabling)
  Sender: FDA-Public Use
  Company Number: None

PATIENT
  Age: 54 Year
  Sex: Female
  Weight: 53.1 kg

DRUGS (7)
  1. DOXYCYCLINE HYCLATE. [Concomitant]
     Active Substance: DOXYCYCLINE HYCLATE
  2. ESTROGEN [Concomitant]
     Active Substance: ESTROGENS
  3. EMGALITY [Suspect]
     Active Substance: GALCANEZUMAB-GNLM
     Indication: MIGRAINE PROPHYLAXIS
     Dosage: ?          QUANTITY:1 INJECTION(S);OTHER FREQUENCY:ONCE PER MONTH;OTHER ROUTE:INJECTION?
     Dates: start: 20181201, end: 20190702
  4. PROGESTERONE. [Concomitant]
     Active Substance: PROGESTERONE
  5. TESTOSTERONE HRT [Concomitant]
  6. ASMANEX [Concomitant]
     Active Substance: MOMETASONE FUROATE
  7. VITAMIN D3 [Concomitant]
     Active Substance: CHOLECALCIFEROL

REACTIONS (9)
  - Constipation [None]
  - Fatigue [None]
  - Weight increased [None]
  - Abdominal pain [None]
  - Depression [None]
  - Abdominal distension [None]
  - Insomnia [None]
  - Gait disturbance [None]
  - Back pain [None]

NARRATIVE: CASE EVENT DATE: 20191201
